FAERS Safety Report 4432833-X (Version None)
Quarter: 2004Q3

REPORT INFORMATION
  Report Type: 
  Country: None (occurrence: None)
  Receive Date: 20040823
  Receipt Date: 20040811
  Transmission Date: 20050211
  Serious: Yes (Other)
  Sender: FDA-Public Use
  Company Number: 2004055425

PATIENT
  Age: 17 Year
  Sex: Female
  Weight: 65 kg

DRUGS (3)
  1. OXYTETRACYCLINE [Suspect]
     Indication: ACNE
     Dosage: 1000 MG (500 MG, 2 IN 1 D), ORAL
     Route: 048
  2. LEVETIRACETAM [Concomitant]
  3. LAMOTRIGINE [Concomitant]

REACTIONS (1)
  - CONVULSION [None]
